FAERS Safety Report 10044348 (Version 1)
Quarter: 2014Q1

REPORT INFORMATION
  Report Type: Spontaneous
  Country: CL (occurrence: CL)
  Receive Date: 20140328
  Receipt Date: 20140328
  Transmission Date: 20141002
  Serious: Yes (Other)
  Sender: FDA-Public Use
  Company Number: CL-PFIZER INC-2014084418

PATIENT
  Age: 69 Year
  Sex: Female

DRUGS (5)
  1. XALATAN [Suspect]
     Indication: GLAUCOMA
     Dosage: 1 DROP, 1X/DAY
     Route: 047
     Dates: start: 2008
  2. ASPIRIN ^BAYER^ [Concomitant]
     Dosage: UNK
     Dates: start: 1984
  3. ATORVASTATIN [Concomitant]
  4. AMPLEX [Concomitant]
  5. PREDNISONE [Concomitant]

REACTIONS (2)
  - Memory impairment [Not Recovered/Not Resolved]
  - Crying [Not Recovered/Not Resolved]
